FAERS Safety Report 12595150 (Version 1)
Quarter: 2016Q3

REPORT INFORMATION
  Report Type: Report from Study
  Country: US (occurrence: US)
  Receive Date: 20160726
  Receipt Date: 20160726
  Transmission Date: 20161109
  Serious: Yes (Hospitalization, Other)
  Sender: FDA-Public Use
  Company Number: US-ROCHE-785812

PATIENT
  Age: 51 Year
  Sex: Female
  Weight: 97.9 kg

DRUGS (6)
  1. GEMCITABINE [Suspect]
     Active Substance: GEMCITABINE\GEMCITABINE HYDROCHLORIDE
     Indication: ADENOCARCINOMA PANCREAS
     Dosage: 1000 MG/M2 IV OVER 30 MINUTES ON DAYS 1, 8, AND 15.
     Route: 042
  2. GEMCITABINE [Suspect]
     Active Substance: GEMCITABINE\GEMCITABINE HYDROCHLORIDE
     Dosage: 1000 MG/M2 IV OVER 30 MINUTES ON DAYS 1, 8, AND 15.
     Route: 042
  3. VISMODEGIB [Suspect]
     Active Substance: VISMODEGIB
     Dosage: TOTAL DOSE 4200 MG LAST DOSE WAS ON 30 MAY 2011 PRIOR TO SAE.
     Route: 048
  4. VISMODEGIB [Suspect]
     Active Substance: VISMODEGIB
     Indication: ADENOCARCINOMA PANCREAS
     Dosage: TOTAL DOSE 4200 MG LAST DOSE WAS ON 30 MAY 2011 PRIOR TO SAE.
     Route: 048
  5. VISMODEGIB [Suspect]
     Active Substance: VISMODEGIB
     Dosage: TOTAL DOSE 4200 MG LAST DOSE WAS ON 30 MAY 2011 PRIOR TO SAE.
     Route: 048
  6. GEMCITABINE [Suspect]
     Active Substance: GEMCITABINE\GEMCITABINE HYDROCHLORIDE
     Dosage: 1000 MG/M2 IV OVER 30 MINUTES ON DAYS 1, 8, AND 15. THE DOSE WAS HELD BECAUSE OF LOW PLATELETS.
     Route: 042
     Dates: start: 20110502, end: 20110531

REACTIONS (7)
  - White blood cell count decreased [Unknown]
  - Lymphocyte count decreased [Unknown]
  - Neutrophil count decreased [Unknown]
  - Platelet count decreased [Unknown]
  - Peritonitis [Recovered/Resolved]
  - Anaemia [Unknown]
  - Hyperglycaemia [Unknown]

NARRATIVE: CASE EVENT DATE: 20110528
